FAERS Safety Report 18695857 (Version 1)
Quarter: 2021Q1

REPORT INFORMATION
  Report Type: Spontaneous
  Country: GB (occurrence: GB)
  Receive Date: 20210104
  Receipt Date: 20210104
  Transmission Date: 20210419
  Serious: Yes (Disabling)
  Sender: FDA-Public Use
  Company Number: GB-PURDUE-USA-2020-0194216

PATIENT
  Age: 41 Year
  Sex: Male
  Weight: 108.2 kg

DRUGS (1)
  1. BUPRENORPHINE. [Suspect]
     Active Substance: BUPRENORPHINE
     Indication: PAIN
     Dosage: 20 MCG, UNK
     Route: 062
     Dates: start: 20201125

REACTIONS (4)
  - Dysuria [Unknown]
  - Pollakiuria [Unknown]
  - Constipation [Recovered/Resolved]
  - Therapeutic product effect decreased [Unknown]

NARRATIVE: CASE EVENT DATE: 20201125
